FAERS Safety Report 8248562-0 (Version None)
Quarter: 2012Q1

REPORT INFORMATION
  Report Type: 
  Country: None (occurrence: None)
  Receive Date: 20120330
  Receipt Date: 20120321
  Transmission Date: 20120608
  Serious: Yes (Hospitalization, Other)
  Sender: FDA-Public Use
  Company Number: US-AMGEN-USASP2011019392

PATIENT
  Age: 77 Year
  Sex: Female

DRUGS (2)
  1. ENBREL [Suspect]
     Indication: RHEUMATOID ARTHRITIS
     Dosage: 50 MG, QWK
     Dates: start: 20040501, end: 20110411
  2. PLAQUENIL [Concomitant]
     Dosage: UNK

REACTIONS (7)
  - HEADACHE [None]
  - VENTRICULAR DYSFUNCTION [None]
  - HEART RATE IRREGULAR [None]
  - MUSCULAR WEAKNESS [None]
  - THYROID DISORDER [None]
  - DEPRESSION [None]
  - DIZZINESS [None]
